FAERS Safety Report 9199767 (Version 1)
Quarter: 2013Q1

REPORT INFORMATION
  Report Type: Spontaneous
  Country: US (occurrence: None)
  Receive Date: 20130328
  Receipt Date: 20130328
  Transmission Date: 20140127
  Serious: No
  Sender: FDA-Public Use
  Company Number: None

PATIENT
  Age: 57 Year
  Sex: Female
  Weight: 61.24 kg

DRUGS (2)
  1. MONTELUKAST [Suspect]
     Indication: ASTHMA
     Dosage: ONE TABLET DAILY PO
     Route: 048
     Dates: start: 20130301, end: 20130324
  2. MONTELUKAST [Suspect]
     Indication: MULTIPLE ALLERGIES
     Dosage: ONE TABLET DAILY PO
     Route: 048
     Dates: start: 20130301, end: 20130324

REACTIONS (5)
  - Drug ineffective [None]
  - Product substitution issue [None]
  - Asthma [None]
  - Multiple allergies [None]
  - Condition aggravated [None]
